FAERS Safety Report 5228786-7 (Version None)
Quarter: 2007Q1

REPORT INFORMATION
  Report Type: 
  Country: None (occurrence: None)
  Receive Date: 20070205
  Receipt Date: 20070130
  Transmission Date: 20070707
  Serious: Yes (Other)
  Sender: FDA-Public Use
  Company Number: US-MERCK-0607USA01666

PATIENT
  Age: 79 Year
  Sex: Female
  Weight: 40 kg

DRUGS (13)
  1. FOSAMAX [Suspect]
     Indication: OSTEOPOROSIS
     Route: 048
     Dates: start: 19990701
  2. CALCIUM (UNSPECIFIED) [Concomitant]
     Route: 065
  3. ARICEPT [Concomitant]
     Route: 065
  4. COUMADIN [Concomitant]
     Route: 065
  5. DIGOXIN [Concomitant]
     Route: 065
  6. FUROSEMIDE [Concomitant]
     Route: 065
  7. PREMARIN [Suspect]
     Route: 065
  8. MEDROXYPROGESTERONE ACETATE [Suspect]
     Route: 065
  9. ASPIRIN [Concomitant]
     Route: 065
  10. METOPROLOL [Concomitant]
     Route: 065
  11. VITAMINS (UNSPECIFIED) [Concomitant]
     Route: 065
  12. NAMENDA [Concomitant]
     Route: 065
  13. REMERON [Concomitant]
     Route: 065

REACTIONS (2)
  - FAILURE OF IMPLANT [None]
  - OSTEONECROSIS [None]
